FAERS Safety Report 6532225-3 (Version None)
Quarter: 2010Q1

REPORT INFORMATION
  Report Type: 
  Country: None (occurrence: None)
  Receive Date: 20100108
  Receipt Date: 20091230
  Transmission Date: 20100710
  Serious: Yes (Other)
  Sender: FDA-Public Use
  Company Number: PHHY2009GB59791

PATIENT
  Sex: Male

DRUGS (4)
  1. CLOZARIL [Suspect]
     Indication: SCHIZOPHRENIA
     Dosage: 50 MG, QD
     Dates: start: 20091030
  2. CLOZARIL [Suspect]
     Dosage: 400 MG, QD
  3. PROCYCLIDINE HYDROCHLORIDE 2MG TAB [Concomitant]
  4. HALOPERIDOL [Concomitant]
     Dosage: UNK

REACTIONS (2)
  - DYSPHEMIA [None]
  - TIC [None]
